FAERS Safety Report 9190698 (Version 1)
Quarter: 2013Q1

REPORT INFORMATION
  Report Type: Spontaneous
  Country: GB (occurrence: None)
  Receive Date: 20130322
  Receipt Date: 20130322
  Transmission Date: 20140127
  Serious: Yes (Life-Threatening)
  Sender: FDA-Public Use
  Company Number: SYM-2013-01783

PATIENT
  Age: 18 Year
  Sex: Female

DRUGS (1)
  1. METRONIDAZOLE [Suspect]
     Route: 048
     Dates: start: 20120920, end: 20120920

REACTIONS (1)
  - Grand mal convulsion [None]
